FAERS Safety Report 10080003 (Version 2)
Quarter: 2014Q2

REPORT INFORMATION
  Report Type: Spontaneous
  Country: AR (occurrence: AR)
  Receive Date: 20140415
  Receipt Date: 20140508
  Transmission Date: 20141212
  Serious: Yes (Hospitalization, Other)
  Sender: FDA-Public Use
  Company Number: AR-ABBVIE-14P-007-1224205-00

PATIENT
  Age: 44 Year
  Sex: Male

DRUGS (5)
  1. RITONAVIR [Suspect]
     Indication: ANTIRETROVIRAL THERAPY
  2. DARUNAVIR [Suspect]
     Indication: ANTIRETROVIRAL THERAPY
  3. TENOFOVIR [Interacting]
     Indication: ANTIRETROVIRAL THERAPY
  4. ABACAVIR [Interacting]
     Indication: ANTIRETROVIRAL THERAPY
  5. IBUPIRAC MIGRA [Interacting]
     Indication: HEADACHE

REACTIONS (6)
  - Ergot poisoning [Recovered/Resolved]
  - Headache [Recovered/Resolved]
  - Hypotension [Recovered/Resolved]
  - Skin discolouration [Recovered/Resolved]
  - Peripheral pulse decreased [Recovered/Resolved]
  - Drug interaction [Recovered/Resolved]
